FAERS Safety Report 9353179 (Version 1)
Quarter: 2013Q2

REPORT INFORMATION
  Report Type: Spontaneous
  Country: NL (occurrence: NL)
  Receive Date: 20130618
  Receipt Date: 20130618
  Transmission Date: 20140414
  Serious: Yes (Other)
  Sender: FDA-Public Use
  Company Number: NL-ASTELLAS-2013EU004982

PATIENT
  Sex: 0

DRUGS (1)
  1. VESICARE [Suspect]
     Dosage: 5 MG, UNKNOWN/D
     Route: 065

REACTIONS (2)
  - Cognitive disorder [Recovered/Resolved]
  - Somnolence [Recovered/Resolved]
